FAERS Safety Report 5981613-2 (Version None)
Quarter: 2008Q4

REPORT INFORMATION
  Report Type: 
  Country: None (occurrence: None)
  Receive Date: 20081205
  Receipt Date: 20081126
  Transmission Date: 20090506
  Serious: Yes (Other)
  Sender: FDA-Public Use
  Company Number: US-JNJFOC-20081200669

PATIENT
  Age: 84 Year
  Sex: Female
  Weight: 63.5 kg

DRUGS (2)
  1. TYLENOL SINUS CONGESTION + PAIN DAYTIME RAPID RELEASE [Suspect]
     Indication: PAIN
     Route: 048
  2. ROZEREM [Concomitant]
     Indication: INSOMNIA

REACTIONS (1)
  - RENAL DISORDER [None]
